FAERS Safety Report 15239903 (Version 2)
Quarter: 2018Q3

REPORT INFORMATION
  Report Type: Report from Study
  Country: None (occurrence: US)
  Receive Date: 20180803
  Receipt Date: 20180831
  Transmission Date: 20181010
  Serious: Yes (Hospitalization, Other)
  Sender: FDA-Public Use
  Company Number: US-ABBVIE-18K-163-2439108-00

PATIENT
  Age: 42 Year
  Sex: Male
  Weight: 105 kg

DRUGS (2)
  1. MAVYRET [Suspect]
     Active Substance: GLECAPREVIR\PIBRENTASVIR
     Indication: CHRONIC HEPATITIS C
     Dosage: COMPLETED COURSE
     Route: 048
     Dates: start: 20180507, end: 20180702
  2. ALBUTEROL. [Concomitant]
     Active Substance: ALBUTEROL
     Indication: ASTHMA

REACTIONS (7)
  - Platelet count decreased [Recovered/Resolved]
  - Intrinsic factor antibody positive [Unknown]
  - Haemoglobin decreased [Recovered/Resolved]
  - Pernicious anaemia [Recovered/Resolved]
  - Fatigue [Recovered/Resolved]
  - Haemolysis [Recovered/Resolved]
  - Amino acid level increased [Unknown]

NARRATIVE: CASE EVENT DATE: 201807
